FAERS Safety Report 9150786 (Version 3)
Quarter: 2014Q3

REPORT INFORMATION
  Report Type: Report from Study
  Country: DE (occurrence: DE)
  Receive Date: 20130308
  Receipt Date: 20140710
  Transmission Date: 20150326
  Serious: Yes (Hospitalization)
  Sender: FDA-Public Use
  Company Number: DE-ROCHE-1198646

PATIENT
  Sex: Female

DRUGS (11)
  1. RANIBIZUMAB [Suspect]
     Active Substance: RANIBIZUMAB
     Route: 050
  2. JANUVIA [Concomitant]
     Active Substance: SITAGLIPTIN PHOSPHATE
  3. DEXPANTHENOL. [Concomitant]
     Active Substance: DEXPANTHENOL
     Route: 031
  4. SIOFOR [Concomitant]
     Active Substance: METFORMIN HYDROCHLORIDE
  5. RANIBIZUMAB [Suspect]
     Active Substance: RANIBIZUMAB
     Route: 050
     Dates: start: 20121010, end: 20121107
  6. LANTUS [Concomitant]
     Active Substance: INSULIN GLARGINE
     Route: 065
     Dates: start: 20130407
  7. RANIBIZUMAB [Suspect]
     Active Substance: RANIBIZUMAB
     Indication: DIABETIC RETINAL OEDEMA
     Route: 050
     Dates: start: 20120902
  8. AMLODIPINE [Concomitant]
     Active Substance: AMLODIPINE BESYLATE
  9. BISOPROLOL [Concomitant]
     Active Substance: BISOPROLOL
  10. SICCAPROTECT [Concomitant]
  11. SIMVAHEXAL [Concomitant]
     Active Substance: SIMVASTATIN

REACTIONS (4)
  - Fall [Unknown]
  - Cerebrovascular accident [Recovered/Resolved]
  - Brain stem infarction [Recovered/Resolved with Sequelae]
  - Microangiopathy [Recovered/Resolved with Sequelae]

NARRATIVE: CASE EVENT DATE: 20121201
